FAERS Safety Report 13781358 (Version 1)
Quarter: 2017Q3

REPORT INFORMATION
  Report Type: Spontaneous
  Country: US (occurrence: US)
  Receive Date: 20170721
  Receipt Date: 20170721
  Transmission Date: 20171127
  Serious: No
  Sender: FDA-Public Use
  Company Number: None

PATIENT
  Age: 65 Year
  Sex: Male

DRUGS (1)
  1. REVLIMID [Suspect]
     Active Substance: LENALIDOMIDE
     Indication: PLASMA CELL MYELOMA
     Dosage: QD X 21 DAYS
     Route: 048
     Dates: start: 20170428

REACTIONS (3)
  - Cough [None]
  - Muscle spasms [None]
  - Oedema peripheral [None]

NARRATIVE: CASE EVENT DATE: 20170721
